FAERS Safety Report 4960240-X (Version None)
Quarter: 2006Q1

REPORT INFORMATION
  Report Type: 
  Country: None (occurrence: None)
  Receive Date: 20060328
  Receipt Date: 20060317
  Transmission Date: 20060701
  Serious: Yes (Other)
  Sender: FDA-Public Use
  Company Number: 2006038610

PATIENT
  Sex: Female
  Weight: 63.05 kg

DRUGS (8)
  1. NEURONTIN [Suspect]
     Indication: CYSTITIS INTERSTITIAL
     Dosage: 100 MG (50 MG, 2 IN 1 D), ORAL
     Route: 048
  2. LYRICA [Suspect]
     Indication: CYSTITIS INTERSTITIAL
     Dosage: 100 MG (50 MG, 2 IN 1 D), ORAL
     Route: 048
  3. MS CONTIN [Concomitant]
  4. PROZAC [Concomitant]
  5. MIRCETTE (DERSOGESTREL, ETHINYLESTRADIOL) [Concomitant]
  6. ALLEGRA-D 12 HOUR [Concomitant]
  7. FLEXERIL [Concomitant]
  8. .. [Concomitant]

REACTIONS (8)
  - CONDITION AGGRAVATED [None]
  - DRUG INEFFECTIVE [None]
  - FEELING ABNORMAL [None]
  - MENOPAUSE [None]
  - MENSTRUAL DISORDER [None]
  - MENSTRUATION IRREGULAR [None]
  - SOMNOLENCE [None]
  - URINARY RETENTION [None]
